FAERS Safety Report 14370344 (Version 1)
Quarter: 2018Q1

REPORT INFORMATION
  Report Type: Spontaneous
  Country: FR (occurrence: FR)
  Receive Date: 20180110
  Receipt Date: 20180110
  Transmission Date: 20180509
  Serious: Yes (Other)
  Sender: FDA-Public Use
  Company Number: FR-MERCK KGAA-2039801

PATIENT
  Sex: Female

DRUGS (7)
  1. FUROSEMIDE. [Concomitant]
     Active Substance: FUROSEMIDE
  2. RAMIPRIL. [Concomitant]
     Active Substance: RAMIPRIL
  3. NOVOTHYROX [Suspect]
     Active Substance: LEVOTHYROXINE SODIUM
     Indication: PRODUCT USED FOR UNKNOWN INDICATION
     Dates: start: 2017
  4. LEVOTHYROX [Concomitant]
     Active Substance: LEVOTHYROXINE
  5. ATORVASTATINE [Concomitant]
     Active Substance: ATORVASTATIN
  6. XARELTO [Concomitant]
     Active Substance: RIVAROXABAN
  7. BISOCE [Concomitant]
     Active Substance: BISOPROLOL

REACTIONS (9)
  - Eye haemorrhage [None]
  - Pruritus [None]
  - Gastrointestinal disorder [None]
  - Eye pruritus [None]
  - Eye pain [None]
  - Limb discomfort [None]
  - Gait disturbance [None]
  - Fall [None]
  - Incontinence [None]

NARRATIVE: CASE EVENT DATE: 2017
